FAERS Safety Report 4551361-4 (Version None)
Quarter: 2005Q1

REPORT INFORMATION
  Report Type: 
  Country: None (occurrence: None)
  Receive Date: 20050110
  Receipt Date: 20041221
  Transmission Date: 20050727
  Serious: Yes (Life-Threatening, Other)
  Sender: FDA-Public Use
  Company Number: 2004S1003770

PATIENT
  Age: 28 Year
  Sex: Male
  Weight: 81.6475 kg

DRUGS (4)
  1. NAPROXEN [Suspect]
     Indication: ARTHRITIS
     Dosage: 500 MG BID, ORAL
     Route: 048
     Dates: start: 19940101
  2. NAPROXEN [Suspect]
     Indication: MIGRAINE
     Dosage: 500 MG BID, ORAL
     Route: 048
     Dates: start: 19940101
  3. METOPROLOL [Concomitant]
  4. ALPRAZOLAM [Concomitant]

REACTIONS (7)
  - BLOOD CHOLESTEROL INCREASED [None]
  - CARDIAC ARREST [None]
  - CARDIAC FAILURE CONGESTIVE [None]
  - FAECAL INCONTINENCE [None]
  - FALL [None]
  - REFUSAL OF TREATMENT BY PATIENT [None]
  - STRESS [None]
